FAERS Safety Report 8767064 (Version 2)
Quarter: 2012Q4

REPORT INFORMATION
  Report Type: 
  Country: US (occurrence: US)
  Receive Date: 20120831
  Receipt Date: 20121009
  Transmission Date: 20130627
  Serious: Yes (Other)
  Sender: FDA-Public Use
  Company Number: US-PFIZER INC-2012210115

PATIENT
  Age: 71 Year
  Sex: Female

DRUGS (2)
  1. MIGLITOL [Suspect]
     Indication: TYPE 2 DIABETES MELLITUS
     Dosage: 50 mg, 3x/day (with the first bite of meals)
     Route: 048
  2. THYROXINE [Concomitant]
     Dosage: UNK

REACTIONS (1)
  - Hallucination, visual [Recovered/Resolved]
